FAERS Safety Report 5937475-2 (Version None)
Quarter: 2008Q4

REPORT INFORMATION
  Report Type: 
  Country: None (occurrence: None)
  Receive Date: 20081031
  Receipt Date: 20081028
  Transmission Date: 20090506
  Serious: Yes (Hospitalization)
  Sender: FDA-Public Use
  Company Number: B0543886A

PATIENT
  Age: 60 Year
  Sex: Female

DRUGS (4)
  1. CLAMOXYL [Suspect]
     Indication: DENTAL CARE
     Route: 048
     Dates: start: 20080928, end: 20081001
  2. SPIROCTAN [Concomitant]
     Indication: DRUG USE FOR UNKNOWN INDICATION
     Route: 065
  3. HORMONE REPLACEMENT THERAPY [Concomitant]
     Indication: HORMONE REPLACEMENT THERAPY
     Route: 065
  4. PYOSTACINE [Concomitant]
     Route: 065
     Dates: start: 20081001, end: 20081002

REACTIONS (5)
  - ABDOMINAL DISCOMFORT [None]
  - DERMATITIS EXFOLIATIVE [None]
  - MUSCULOSKELETAL STIFFNESS [None]
  - RASH MACULAR [None]
  - TYPE IV HYPERSENSITIVITY REACTION [None]
